FAERS Safety Report 4648398-3 (Version None)
Quarter: 2005Q2

REPORT INFORMATION
  Report Type: 
  Country: None (occurrence: None)
  Receive Date: 20050427
  Receipt Date: 20050406
  Transmission Date: 20051028
  Serious: Yes (Other)
  Sender: FDA-Public Use
  Company Number: GBS050316821

PATIENT
  Age: 59 Year
  Sex: Female
  Weight: 50 kg

DRUGS (2)
  1. FORTEO [Suspect]
     Indication: OSTEOPOROSIS
     Dosage: 20 UG
     Dates: start: 20040709, end: 20041001
  2. CALCIUM PHOSPHATE W/COLECALCIFEROL [Concomitant]

REACTIONS (5)
  - APHAGIA [None]
  - DRUG INTOLERANCE [None]
  - NAUSEA [None]
  - STRESS [None]
  - VOMITING [None]
